FAERS Safety Report 5507279-3 (Version None)
Quarter: 2007Q4

REPORT INFORMATION
  Report Type: 
  Country: None (occurrence: None)
  Receive Date: 20071106
  Receipt Date: 20071029
  Transmission Date: 20080405
  Serious: Yes (Other)
  Sender: FDA-Public Use
  Company Number: PHEH2007US13807

PATIENT
  Sex: Female

DRUGS (1)
  1. EXELON [Suspect]
     Indication: DEMENTIA ALZHEIMER'S TYPE
     Dosage: UNK, UNK
     Route: 062
     Dates: start: 20070924

REACTIONS (8)
  - CONDITION AGGRAVATED [None]
  - COORDINATION ABNORMAL [None]
  - DAYDREAMING [None]
  - FALL [None]
  - FATIGUE [None]
  - GAIT DISTURBANCE [None]
  - HEAD INJURY [None]
  - PAIN [None]
